FAERS Safety Report 9643138 (Version 2)
Quarter: 2013Q4

REPORT INFORMATION
  Report Type: Report from Study
  Country: ES (occurrence: ES)
  Receive Date: 20131024
  Receipt Date: 20131029
  Transmission Date: 20140711
  Serious: Yes (Hospitalization)
  Sender: FDA-Public Use
  Company Number: ES-PFIZER INC-2013301781

PATIENT
  Age: 72 Year
  Sex: Male

DRUGS (42)
  1. EPLERENONE [Suspect]
     Dosage: 25 MG, 1X/DAY
     Route: 065
     Dates: start: 201202, end: 20120424
  2. ALEGLITAZAR [Suspect]
     Indication: CARDIOVASCULAR EVENT PROPHYLAXIS
     Dosage: MOST RECENT DOSE PRIOR TO SAE 02/MAY/2012 (EVERY DAY)
     Route: 048
     Dates: start: 20120330
  3. FUROSEMIDE [Suspect]
     Indication: PRODUCT USED FOR UNKNOWN INDICATION
     Dosage: 40 MG, 1X/DAY
     Route: 065
     Dates: start: 201202, end: 20120503
  4. ENALAPRIL MALEATE [Suspect]
     Indication: PRODUCT USED FOR UNKNOWN INDICATION
     Dosage: 10 MG, 2X/DAY
     Route: 065
     Dates: start: 201202, end: 20120504
  5. ENALAPRIL MALEATE [Suspect]
     Dosage: 2.5 MG, 1X/DAY
     Route: 065
     Dates: start: 20120720
  6. BISOPROLOL [Concomitant]
     Dosage: 1.25 MG, 2X/DAY
     Dates: start: 201202, end: 20120503
  7. BISOPROLOL [Concomitant]
     Dosage: 1.25 MG, 1X/DAY
     Dates: start: 20120504, end: 20120508
  8. NITROGLYCERIN [Concomitant]
     Dosage: 10 MG, UNK
     Dates: start: 201202
  9. NITROGLYCERIN [Concomitant]
     Dosage: 1 MG, AS NEEDED
     Dates: start: 201202
  10. AMIODARONE HYDROCHLORIDE [Concomitant]
     Dosage: 200 MG, 1X/DAY
     Dates: start: 201202, end: 20121004
  11. FRAXIPARINE (NADROPARIN CALCIUM) [Concomitant]
     Dosage: 0.6 MG, 1X/DAY
     Dates: start: 201202, end: 20120316
  12. ATORVASTATIN [Concomitant]
     Dosage: 80 MG, 1X/DAY
     Dates: start: 201202, end: 20120504
  13. ATORVASTATIN [Concomitant]
     Dosage: 40 MG, 1X/DAY
     Dates: start: 20120504
  14. CLOPIDOGREL [Concomitant]
     Dosage: 75 MG, 1X/DAY
     Dates: start: 201202, end: 20120503
  15. ACETYLSALICYLIC ACID [Concomitant]
     Dosage: 100 MG, 1X/DAY
     Dates: start: 201202, end: 20120512
  16. ACETYLSALICYLIC ACID [Concomitant]
     Dosage: 100 MG, 1X/DAY
     Dates: start: 20120515
  17. PANTOPRAZOL [Concomitant]
     Dosage: 40 MG, 1X/DAY
     Dates: start: 201202
  18. METFORMIN [Concomitant]
     Dosage: 2550 MG, UNK
     Dates: start: 1997, end: 20120503
  19. METFORMIN [Concomitant]
     Dosage: 1000 MG, 2X/DAY
     Dates: start: 1997, end: 20120503
  20. LEVEMIR [Concomitant]
     Dosage: 24 IU, 1X/DAY
     Dates: start: 1997, end: 20120311
  21. LEVEMIR [Concomitant]
     Dosage: 22 IU, UNK
     Dates: start: 20120312, end: 20120503
  22. LEVEMIR [Concomitant]
     Dosage: 20 UNIT NOT REPORTED
     Dates: start: 20120503, end: 20120504
  23. NOVORAPID [Concomitant]
     Dosage: 4-8-8 IU/ML2 (1 IN 1 D)
     Dates: start: 1997
  24. NOVORAPID [Concomitant]
     Dosage: 3 IU, 3X/DAY
     Dates: start: 20120503, end: 20120504
  25. NOVORAPID [Concomitant]
     Dosage: (3 IN 1 D)
     Dates: start: 20120505
  26. CAFINITRINA [Concomitant]
     Dosage: (AS REQUIRED)
     Dates: start: 201202
  27. SINTROM [Concomitant]
     Dosage: 1 DF, 1X/DAY
     Dates: start: 20120316, end: 20120503
  28. SINTROM [Concomitant]
     Dosage: 1 DF, 1X/DAY
     Dates: start: 20120516
  29. AMLODIPINE [Concomitant]
     Dosage: 5 MG, 3X/DAY
     Dates: start: 20120504, end: 20120508
  30. ENOXAPARIN [Concomitant]
     Dosage: 40 MG, 2X/DAY
     Dates: start: 20120503
  31. ENOXAPARIN [Concomitant]
     Dosage: 60 MG, 2X/DAY
     Dates: start: 20120503, end: 20120510
  32. ENOXAPARIN [Concomitant]
     Dosage: 60 MG, 2X/DAY
     Dates: start: 20120510, end: 20120514
  33. IDEOS [Concomitant]
     Dosage: 500/4 MG (1 IN 1 D)
     Dates: start: 20120511
  34. DACORTIN [Concomitant]
     Dosage: 30 MG, 1X/DAY
     Dates: start: 20120516, end: 20120523
  35. DACORTIN [Concomitant]
     Dosage: 20 MG, 1X/DAY
     Dates: start: 20120523, end: 20120530
  36. DACORTIN [Concomitant]
     Dosage: 10 MG, 1X/DAY
     Dates: start: 20120530, end: 20120606
  37. DACORTIN [Concomitant]
     Dosage: 7.5 MG, 1X/DAY
     Dates: start: 20120606, end: 20121106
  38. CAFEINA [Concomitant]
     Dosage: 25 MG, AS NEEDED
     Dates: start: 201202
  39. VILDAGLIPTIN [Concomitant]
     Dosage: 50 MG, 2X/DAY
     Dates: start: 1997, end: 20120503
  40. INSULIN GLARGINE [Concomitant]
     Dosage: 1 IN 1 D
     Dates: start: 20130326
  41. INSULIN LISPRO [Concomitant]
     Dosage: 1 IN 1 D
     Dates: start: 20121004, end: 20130325
  42. NADROPARIN CALCIUM [Concomitant]
     Dosage: 11400 IU
     Dates: start: 20120515, end: 20120516

REACTIONS (4)
  - Renal failure acute [Unknown]
  - Blood creatinine increased [Recovered/Resolved]
  - Cystatin C increased [Recovered/Resolved]
  - Decreased appetite [Recovered/Resolved]
